FAERS Safety Report 5430683-9 (Version None)
Quarter: 2007Q3

REPORT INFORMATION
  Report Type: 
  Country: None (occurrence: None)
  Receive Date: 20070830
  Receipt Date: 20070820
  Transmission Date: 20080115
  Serious: Yes (Hospitalization)
  Sender: FDA-Public Use
  Company Number: CA-ABBOTT-07P-028-0378502-00

PATIENT
  Sex: Female
  Weight: 59.928 kg

DRUGS (13)
  1. HUMIRA [Suspect]
     Indication: RHEUMATOID ARTHRITIS
     Route: 058
     Dates: start: 20050518
  2. METHOTREXATE [Concomitant]
     Indication: DRUG USE FOR UNKNOWN INDICATION
  3. VOLTAREN [Concomitant]
     Indication: DRUG USE FOR UNKNOWN INDICATION
  4. ESTROGENS CONJUGATED [Concomitant]
     Indication: DRUG USE FOR UNKNOWN INDICATION
  5. PREMETRIUM [Concomitant]
     Indication: DRUG USE FOR UNKNOWN INDICATION
  6. RISEDRONATE SODIUM [Concomitant]
     Indication: DRUG USE FOR UNKNOWN INDICATION
  7. B COMPLEX WITH VITAMIN C [Concomitant]
     Indication: DRUG USE FOR UNKNOWN INDICATION
  8. CALCIUM [Concomitant]
     Indication: DRUG USE FOR UNKNOWN INDICATION
  9. FOLIC ACID [Concomitant]
     Indication: DRUG USE FOR UNKNOWN INDICATION
  10. LINUM USITATISSIMUM SEED OIL [Concomitant]
     Indication: DRUG USE FOR UNKNOWN INDICATION
  11. OENOTHERA BIENNIS OIL [Concomitant]
     Indication: DRUG USE FOR UNKNOWN INDICATION
  12. PARACETAMOL [Concomitant]
     Indication: DRUG USE FOR UNKNOWN INDICATION
  13. ATENOLOL [Concomitant]
     Indication: DRUG USE FOR UNKNOWN INDICATION
     Route: 048

REACTIONS (1)
  - UNEVALUABLE EVENT [None]
